FAERS Safety Report 20016242 (Version 1)
Quarter: 2021Q4

REPORT INFORMATION
  Report Type: Spontaneous
  Country: US (occurrence: None)
  Receive Date: 20211103
  Receipt Date: 20211103
  Transmission Date: 20220303
  Serious: Yes (Disabling, Other)
  Sender: FDA-Public Use
  Company Number: None

PATIENT
  Age: 36 Year
  Sex: Female
  Weight: 83.91 kg

DRUGS (3)
  1. METHYLPHENIDATE [Suspect]
     Active Substance: METHYLPHENIDATE
     Indication: Attention deficit hyperactivity disorder
     Dosage: OTHER QUANTITY : 45 DF DOSAGE FORM;?FREQUENCY : 3 TIMES A DAY;?
     Route: 048
     Dates: start: 20211021, end: 20211102
  2. FLUOXETINE [Concomitant]
     Active Substance: FLUOXETINE HYDROCHLORIDE
  3. Daily Multi Vitamin Gummy [Concomitant]

REACTIONS (5)
  - Drug ineffective [None]
  - Migraine [None]
  - Suicidal ideation [None]
  - Diarrhoea [None]
  - Palpitations [None]

NARRATIVE: CASE EVENT DATE: 20211028
